FAERS Safety Report 8098273-X (Version None)
Quarter: 2012Q1

REPORT INFORMATION
  Report Type: 
  Country: None (occurrence: None)
  Receive Date: 20120128
  Receipt Date: 20110808
  Transmission Date: 20120608
  Serious: No
  Sender: FDA-Public Use
  Company Number: US-ABBOTT-11P-163-0844702-00

PATIENT
  Sex: Female
  Weight: 56.296 kg

DRUGS (4)
  1. VITAMIN B COMPLEX CAP [Concomitant]
     Indication: VITAMIN SUPPLEMENTATION
  2. BENADRYL [Concomitant]
     Indication: INSOMNIA
  3. CALCIUM [Concomitant]
     Indication: MINERAL SUPPLEMENTATION
  4. HUMIRA [Suspect]
     Indication: RHEUMATOID ARTHRITIS
     Dates: start: 20091201, end: 20101201

REACTIONS (3)
  - JOINT SWELLING [None]
  - ARTHRALGIA [None]
  - RHEUMATOID ARTHRITIS [None]
